FAERS Safety Report 12807397 (Version 1)
Quarter: 2016Q4

REPORT INFORMATION
  Report Type: Spontaneous
  Country: US (occurrence: US)
  Receive Date: 20161004
  Receipt Date: 20161004
  Transmission Date: 20170207
  Serious: No
  Sender: FDA-Public Use
  Company Number: US-BAYER-2016-190810

PATIENT
  Sex: Female

DRUGS (1)
  1. MIRENA [Suspect]
     Active Substance: LEVONORGESTREL
     Dosage: 20 MCG/24HR, CONT
     Route: 015
     Dates: start: 20160212, end: 20160927

REACTIONS (3)
  - Abdominal discomfort [None]
  - Patient dissatisfaction with treatment [None]
  - Vaginal haemorrhage [None]

NARRATIVE: CASE EVENT DATE: 2016
